FAERS Safety Report 20405969 (Version 1)
Quarter: 2022Q1

REPORT INFORMATION
  Report Type: Spontaneous
  Country: BD (occurrence: BD)
  Receive Date: 20220131
  Receipt Date: 20220131
  Transmission Date: 20220424
  Serious: Yes (Death)
  Sender: FDA-Public Use
  Company Number: BD-ZO SKIN HEALTH-2022ZOS00002

PATIENT
  Age: 4 Year
  Sex: Male

DRUGS (2)
  1. TRETINOIN [Suspect]
     Active Substance: TRETINOIN
     Indication: Acute promyelocytic leukaemia
     Dosage: UNK
     Route: 065
  2. UNSPECIFIED ANTHRACYCLINE [Concomitant]
     Indication: Acute promyelocytic leukaemia
     Route: 065

REACTIONS (1)
  - Differentiation syndrome [Fatal]
